FAERS Safety Report 15209379 (Version 1)
Quarter: 2018Q3

REPORT INFORMATION
  Report Type: Spontaneous
  Country: IT (occurrence: IT)
  Receive Date: 20180727
  Receipt Date: 20180727
  Transmission Date: 20181010
  Serious: Yes (Hospitalization, Other)
  Sender: FDA-Public Use
  Company Number: IT-BAUSCH-BL-2018-020133

PATIENT
  Age: 52 Year
  Sex: Male

DRUGS (3)
  1. METFORMIN [Suspect]
     Active Substance: METFORMIN HYDROCHLORIDE
     Indication: TYPE 2 DIABETES MELLITUS
     Dosage: 1500 MG, QD
     Route: 065
  2. METFORMIN [Suspect]
     Active Substance: METFORMIN HYDROCHLORIDE
     Dosage: 500 MG, QD
     Route: 065
  3. VALSARTAN. [Suspect]
     Active Substance: VALSARTAN
     Indication: HYPERTENSION
     Dosage: 160 MG, QD
     Route: 065

REACTIONS (9)
  - Loss of consciousness [Recovered/Resolved]
  - Coma [Recovered/Resolved]
  - Central nervous system lesion [Unknown]
  - Dyslipidaemia [Unknown]
  - Aphasia [Unknown]
  - Hypoxic-ischaemic encephalopathy [Unknown]
  - Hypertensive heart disease [Unknown]
  - Hemiplegia [Unknown]
  - Glucose tolerance impaired [Unknown]
